FAERS Safety Report 6201155-9 (Version None)
Quarter: 2009Q2

REPORT INFORMATION
  Report Type: 
  Country: None (occurrence: None)
  Receive Date: 20090526
  Receipt Date: 20090515
  Transmission Date: 20091009
  Serious: No
  Sender: FDA-Public Use
  Company Number: AU-EISAI INC.-E3810-02824-SPO-AU

PATIENT
  Sex: Male

DRUGS (2)
  1. PARIET (RABEPRAZOLE) [Suspect]
     Dosage: UNKNOWN
     Route: 048
  2. CORTISONE [Concomitant]
     Dosage: UNKNOWN

REACTIONS (2)
  - NEUROPATHY PERIPHERAL [None]
  - RENAL FAILURE [None]
